FAERS Safety Report 6585218-4 (Version None)
Quarter: 2010Q1

REPORT INFORMATION
  Report Type: 
  Country: None (occurrence: None)
  Receive Date: 20100217
  Receipt Date: 20100111
  Transmission Date: 20100710
  Serious: Yes (Death)
  Sender: FDA-Public Use
  Company Number: US-PFIZER INC-2009275781

PATIENT
  Age: 25 Year
  Sex: Male

DRUGS (4)
  1. NICOTINE [Suspect]
  2. SERTRALINE HCL [Interacting]
  3. METHADONE [Interacting]
  4. TETRAHYDROCANNABINOL [Interacting]

REACTIONS (5)
  - BRAIN OEDEMA [None]
  - DRUG INTERACTION [None]
  - INCORRECT ROUTE OF DRUG ADMINISTRATION [None]
  - PULMONARY OEDEMA [None]
  - SUBSTANCE ABUSE [None]
